FAERS Safety Report 7738779-3 (Version None)
Quarter: 2011Q3

REPORT INFORMATION
  Report Type: 
  Country: None (occurrence: None)
  Receive Date: 20110908
  Receipt Date: 20110826
  Transmission Date: 20111222
  Serious: Yes (Hospitalization, Congenital Anomaly)
  Sender: FDA-Public Use
  Company Number: DE-MYLANLABS-2011S1017754

PATIENT
  Age: 0 Year
  Sex: Male
  Weight: 2.14 kg

DRUGS (2)
  1. CITALOPRAM HYDROBROMIDE [Suspect]
     Dosage: 10 [MG/D ]
     Route: 064
     Dates: start: 20100304, end: 20101014
  2. FOLIO [Concomitant]
     Route: 064
     Dates: start: 20100304

REACTIONS (2)
  - CHYLOTHORAX [None]
  - MATERNAL EXPOSURE DURING PREGNANCY [None]
